FAERS Safety Report 9735871 (Version 1)
Quarter: 2013Q4

REPORT INFORMATION
  Report Type: Spontaneous
  Country: US (occurrence: US)
  Receive Date: 20131206
  Receipt Date: 20131206
  Transmission Date: 20140711
  Serious: No
  Sender: FDA-Public Use
  Company Number: US-GILEAD-2009-0024188

PATIENT
  Sex: Female
  Weight: 70.31 kg

DRUGS (14)
  1. LETAIRIS [Suspect]
     Indication: PULMONARY ARTERIAL HYPERTENSION
     Route: 048
     Dates: start: 20090801
  2. WARFARIN [Concomitant]
  3. LORAZEPAM [Concomitant]
  4. JANUVIA [Concomitant]
  5. ZOCOR [Concomitant]
  6. METOPROLOL [Concomitant]
  7. SYNTHROID [Concomitant]
  8. ZOLOFT [Concomitant]
  9. NORVASC [Concomitant]
  10. DIOVAN [Concomitant]
  11. LAMICTAL [Concomitant]
  12. GLIPIZIDE-METFORMIN [Concomitant]
  13. DIGOXIN [Concomitant]
  14. FISH OIL [Concomitant]

REACTIONS (3)
  - Nausea [Unknown]
  - Malaise [Unknown]
  - Local swelling [Unknown]
